FAERS Safety Report 9478738 (Version 1)
Quarter: 2013Q3

REPORT INFORMATION
  Report Type: Spontaneous
  Country: US (occurrence: US)
  Receive Date: 20130827
  Receipt Date: 20130827
  Transmission Date: 20140515
  Serious: Yes (Other)
  Sender: FDA-Public Use
  Company Number: US-009507513-1308USA011488

PATIENT
  Age: 59 Year
  Sex: Male

DRUGS (2)
  1. JANUMET XR [Suspect]
     Indication: DIABETES MELLITUS
     Dosage: 50/1000 MG / 2 TABLETS ONCE DAILY
     Route: 048
     Dates: start: 20130426
  2. LANTUS [Concomitant]

REACTIONS (2)
  - Pancreatitis [Unknown]
  - Inappropriate schedule of drug administration [Unknown]
